FAERS Safety Report 24326261 (Version 1)
Quarter: 2024Q3

REPORT INFORMATION
  Report Type: Report from Study
  Country: US (occurrence: None)
  Receive Date: 20240917
  Receipt Date: 20240917
  Transmission Date: 20241016
  Serious: Yes (Other)
  Sender: ASTRAZENECA
  Company Number: 2024A210577

PATIENT
  Sex: Male
  Weight: 131.5 kg

DRUGS (6)
  1. CALQUENCE [Suspect]
     Active Substance: ACALABRUTINIB
     Indication: Chronic lymphocytic leukaemia
     Route: 048
  2. ANDROGEL [Concomitant]
     Active Substance: TESTOSTERONE
  3. ONDANSETRON [Concomitant]
     Active Substance: ONDANSETRON
  4. LEVOTHYROXINE [Concomitant]
     Active Substance: LEVOTHYROXINE\LEVOTHYROXINE SODIUM
  5. TADALAFIL [Concomitant]
     Active Substance: TADALAFIL
  6. IBUPROFEN [Concomitant]
     Active Substance: IBUPROFEN

REACTIONS (2)
  - Atrial fibrillation [Unknown]
  - Transient ischaemic attack [Unknown]
